APPROVED DRUG PRODUCT: GABAPENTIN
Active Ingredient: GABAPENTIN
Strength: 800MG
Dosage Form/Route: TABLET;ORAL
Application: A207057 | Product #002 | TE Code: AB1
Applicant: CSPC OUYI PHARMACEUTICAL CO LTD
Approved: Oct 26, 2017 | RLD: No | RS: No | Type: RX